FAERS Safety Report 23160332 (Version 1)
Quarter: 2023Q4

REPORT INFORMATION
  Report Type: Spontaneous
  Country: US (occurrence: None)
  Receive Date: 20231108
  Receipt Date: 20231108
  Transmission Date: 20240109
  Serious: No
  Sender: FDA-Public Use
  Company Number: None

PATIENT
  Age: 55 Year
  Sex: Male

DRUGS (2)
  1. DESCOVY [Suspect]
     Active Substance: EMTRICITABINE\TENOFOVIR ALAFENAMIDE FUMARATE
     Dosage: OTHER QUANTITY : 200/25MG;?FREQUENCY : DAILY;?
     Route: 048
  2. TIVICAY [Suspect]
     Active Substance: DOLUTEGRAVIR SODIUM
     Dosage: FREQUENCY : DAILY;?
     Route: 048

REACTIONS (7)
  - Joint stiffness [None]
  - Haematemesis [None]
  - Headache [None]
  - Chest pain [None]
  - Eye pain [None]
  - Muscular weakness [None]
  - Dyspnoea [None]

NARRATIVE: CASE EVENT DATE: 20231013
